FAERS Safety Report 9375380 (Version 1)
Quarter: 2013Q2

REPORT INFORMATION
  Report Type: Other
  Country: FR (occurrence: FR)
  Receive Date: 20130628
  Receipt Date: 20130628
  Transmission Date: 20140414
  Serious: Yes (Other)
  Sender: FDA-Public Use
  Company Number: FR-BRISTOL-MYERS SQUIBB COMPANY-19020312

PATIENT
  Sex: 0

DRUGS (1)
  1. ARIPIPRAZOLE [Suspect]
     Route: 064

REACTIONS (2)
  - Pulmonary hypertension [Unknown]
  - Withdrawal syndrome [Unknown]
